FAERS Safety Report 25335598 (Version 1)
Quarter: 2025Q2

REPORT INFORMATION
  Report Type: Spontaneous
  Country: US (occurrence: US)
  Receive Date: 20250520
  Receipt Date: 20250520
  Transmission Date: 20250717
  Serious: Yes (Other)
  Sender: ROCHE
  Company Number: US-ROCHE-10000285013

PATIENT
  Sex: Female

DRUGS (2)
  1. XOLAIR PFS [Suspect]
     Active Substance: OMALIZUMAB
     Indication: Product used for unknown indication
     Route: 058
     Dates: start: 2014
  2. XOLAIR PFS [Suspect]
     Active Substance: OMALIZUMAB

REACTIONS (6)
  - Angioedema [Unknown]
  - Drug ineffective [Unknown]
  - Product packaging difficult to open [Unknown]
  - Product quality issue [Unknown]
  - Underdose [Unknown]
  - Accidental exposure to product [Unknown]
